FAERS Safety Report 7370984-0 (Version None)
Quarter: 2011Q1

REPORT INFORMATION
  Report Type: 
  Country: None (occurrence: None)
  Receive Date: 20110324
  Receipt Date: 20110315
  Transmission Date: 20110831
  Serious: No
  Sender: FDA-Public Use
  Company Number: US-BIOGENIDEC-2011BI010074

PATIENT
  Age: 39 Year
  Sex: Female

DRUGS (2)
  1. AVONEX [Suspect]
     Indication: MULTIPLE SCLEROSIS
     Route: 030
     Dates: start: 20081101
  2. AVONEX [Suspect]
     Route: 030
     Dates: start: 19990320, end: 20080628

REACTIONS (4)
  - CHILLS [None]
  - MYALGIA [None]
  - HYPERHIDROSIS [None]
  - ARTHRALGIA [None]
